FAERS Safety Report 8423910-7 (Version None)
Quarter: 2012Q2

REPORT INFORMATION
  Report Type: 
  Country: None (occurrence: None)
  Receive Date: 20120608
  Receipt Date: 20120301
  Transmission Date: 20120825
  Serious: No
  Sender: FDA-Public Use
  Company Number: US-ASTRAZENECA-2012SE14558

PATIENT
  Age: 81 Year
  Sex: Female
  Weight: 38.6 kg

DRUGS (5)
  1. LIPITOR [Concomitant]
  2. VITAMIN TAB [Concomitant]
  3. ASPIRIN [Concomitant]
  4. ATACAND [Suspect]
     Indication: HYPERTENSION
     Route: 048
     Dates: start: 20110901, end: 20120201
  5. ATACAND [Suspect]
     Route: 048
     Dates: start: 20120201

REACTIONS (3)
  - DRUG INEFFECTIVE [None]
  - BLOOD PRESSURE INCREASED [None]
  - OEDEMA PERIPHERAL [None]
